FAERS Safety Report 14416163 (Version 2)
Quarter: 2018Q1

REPORT INFORMATION
  Report Type: Spontaneous
  Country: US (occurrence: US)
  Receive Date: 20180122
  Receipt Date: 20180312
  Transmission Date: 20180509
  Serious: Yes (Other)
  Sender: FDA-Public Use
  Company Number: US-AUROBINDO-AUR-APL-2018-002442

PATIENT
  Age: 53 Year
  Sex: Male

DRUGS (11)
  1. CANGRELOR [Suspect]
     Active Substance: CANGRELOR
     Dosage: 0.5 ?G/KG/MIN
  2. CANGRELOR [Suspect]
     Active Substance: CANGRELOR
     Indication: PRODUCT USED FOR UNKNOWN INDICATION
     Dosage: 2 ?G/KG/MIN
     Route: 042
  3. ASPIRIN                            /00002701/ [Suspect]
     Active Substance: ASPIRIN
     Indication: PRODUCT USED FOR UNKNOWN INDICATION
     Dosage: 81 MG, DAILY
  4. HEPARIN [Suspect]
     Active Substance: HEPARIN SODIUM
     Dosage: 5000 U, UNK
  5. HEPARIN [Suspect]
     Active Substance: HEPARIN SODIUM
     Dosage: INFUSION WAS STARTED WITHOUT BOLUS
  6. TICAGRELOR. [Suspect]
     Active Substance: TICAGRELOR
     Indication: PRODUCT USED FOR UNKNOWN INDICATION
     Dosage: 90 MG, TWO TIMES A DAY
  7. CLOPIDOGREL [Suspect]
     Active Substance: CLOPIDOGREL BISULFATE
     Indication: PRODUCT USED FOR UNKNOWN INDICATION
  8. EPTIFIBATIDE. [Suspect]
     Active Substance: EPTIFIBATIDE
     Indication: PRODUCT USED FOR UNKNOWN INDICATION
     Dosage: 60 UNK, U/KG
     Route: 040
  9. EPTIFIBATIDE. [Suspect]
     Active Substance: EPTIFIBATIDE
     Dosage: 2 UNK, ?G/KG/MIN
     Route: 042
  10. EPTIFIBATIDE. [Suspect]
     Active Substance: EPTIFIBATIDE
     Dosage: LOADING DOSE OF 160MG VIA ORAL GASTRIC TUBE
  11. EPTIFIBATIDE. [Suspect]
     Active Substance: EPTIFIBATIDE
     Dosage: 1 ?G/KG/MIN

REACTIONS (3)
  - Pulmonary haemorrhage [Unknown]
  - Thrombocytopenia [Unknown]
  - Haemorrhage [Unknown]
